FAERS Safety Report 7120731-2 (Version None)
Quarter: 2010Q4

REPORT INFORMATION
  Report Type: 
  Country: None (occurrence: None)
  Receive Date: 20101124
  Receipt Date: 20101119
  Transmission Date: 20110411
  Serious: Yes (Hospitalization)
  Sender: FDA-Public Use
  Company Number: US-US-EMD SERONO, INC.-7024881

PATIENT
  Sex: Female
  Weight: 98 kg

DRUGS (4)
  1. REBIF [Suspect]
     Indication: MULTIPLE SCLEROSIS
     Route: 058
     Dates: start: 20050317
  2. LOTREL [Concomitant]
     Indication: HYPERTENSION
  3. TOPROL-XL [Concomitant]
     Indication: HYPERTENSION
  4. DETROL LA [Concomitant]
     Indication: POLLAKIURIA

REACTIONS (1)
  - SMALL INTESTINAL OBSTRUCTION [None]
